FAERS Safety Report 12320416 (Version 1)
Quarter: 2016Q2

REPORT INFORMATION
  Report Type: Report from Study
  Country: TR (occurrence: TR)
  Receive Date: 20160429
  Receipt Date: 20160429
  Transmission Date: 20160815
  Serious: Yes (Other)
  Sender: FDA-Public Use
  Company Number: TR-ABBVIE-15P-161-1414202-00

PATIENT
  Sex: Female
  Weight: 52 kg

DRUGS (1)
  1. HUMIRA [Suspect]
     Active Substance: ADALIMUMAB
     Indication: PSORIASIS
     Route: 058
     Dates: start: 20150521, end: 20150622

REACTIONS (3)
  - Exposure during pregnancy [Unknown]
  - Foetal death [Unknown]
  - Abortion induced [Recovered/Resolved]
